FAERS Safety Report 21471571 (Version 1)
Quarter: 2022Q4

REPORT INFORMATION
  Report Type: Spontaneous
  Country: FR (occurrence: None)
  Receive Date: 20221018
  Receipt Date: 20221018
  Transmission Date: 20230112
  Serious: Yes (Other)
  Sender: FDA-Public Use
  Company Number: 2022A341851

PATIENT
  Age: 59 Year
  Sex: Male

DRUGS (2)
  1. DAPAGLIFLOZIN [Suspect]
     Active Substance: DAPAGLIFLOZIN
     Indication: Product used for unknown indication
     Dosage: UNK
     Route: 048
     Dates: start: 20220615
  2. ENTRESTO [Suspect]
     Active Substance: SACUBITRIL\VALSARTAN
     Indication: Cardiac failure
     Dosage: 1 DOSAGE FORM, BID (ONE TABLET IN THE MORNING AND ONE IN THE EVENING), 2 DF DAILY
     Route: 065
     Dates: start: 20220615

REACTIONS (4)
  - Pancreatic carcinoma [Unknown]
  - Fatigue [Unknown]
  - Dizziness [Unknown]
  - Blood test abnormal [Not Recovered/Not Resolved]

NARRATIVE: CASE EVENT DATE: 20220919
